FAERS Safety Report 14476941 (Version 1)
Quarter: 2018Q1

REPORT INFORMATION
  Report Type: Report from Study
  Country: US (occurrence: US)
  Receive Date: 20180201
  Receipt Date: 20180201
  Transmission Date: 20180509
  Serious: No
  Sender: FDA-Public Use
  Company Number: US-EXELIXIS-CABO-17009707

PATIENT
  Sex: Male

DRUGS (32)
  1. COMETRIQ [Suspect]
     Active Substance: CABOZANTINIB S-MALATE
     Indication: THYROID CANCER
     Dosage: 140 MG, QD
     Route: 048
     Dates: start: 20160203, end: 201603
  2. COMETRIQ [Suspect]
     Active Substance: CABOZANTINIB S-MALATE
     Dosage: 60 MG, QD, 2-4 DAYS OFF THEN BACK ON
     Route: 048
     Dates: start: 201605
  3. BUSPAR [Concomitant]
     Active Substance: BUSPIRONE HYDROCHLORIDE
  4. MELATONIN [Concomitant]
     Active Substance: MELATONIN
  5. ULORIC [Concomitant]
     Active Substance: FEBUXOSTAT
  6. MAGNESIUM [Concomitant]
     Active Substance: MAGNESIUM
  7. LACTULOSE. [Concomitant]
     Active Substance: LACTULOSE
  8. SPIRIVA [Concomitant]
     Active Substance: TIOTROPIUM BROMIDE MONOHYDRATE
  9. VITAMIN D [Concomitant]
     Active Substance: CHOLECALCIFEROL
  10. FENOFIBRATE. [Concomitant]
     Active Substance: FENOFIBRATE
  11. TOPROL XL [Concomitant]
     Active Substance: METOPROLOL SUCCINATE
  12. ZOCOR [Concomitant]
     Active Substance: SIMVASTATIN
  13. FLOMAX [Concomitant]
     Active Substance: TAMSULOSIN HYDROCHLORIDE
  14. LANTUS [Concomitant]
     Active Substance: INSULIN GLARGINE
  15. FENTANYL. [Concomitant]
     Active Substance: FENTANYL
  16. FISH OIL [Concomitant]
     Active Substance: FISH OIL
  17. HUMALOG [Concomitant]
     Active Substance: INSULIN LISPRO
  18. SENNA [Concomitant]
     Active Substance: SENNA LEAF\SENNOSIDES\SENNOSIDES A AND B
  19. NIFEDIAC CC [Concomitant]
     Active Substance: NIFEDIPINE
  20. GABAPENTIN. [Concomitant]
     Active Substance: GABAPENTIN
  21. ZANTAC [Concomitant]
     Active Substance: RANITIDINE HYDROCHLORIDE
  22. COLACE [Concomitant]
     Active Substance: DOCUSATE SODIUM
  23. IMDUR [Concomitant]
     Active Substance: ISOSORBIDE MONONITRATE
  24. GLIMEPIRIDE. [Concomitant]
     Active Substance: GLIMEPIRIDE
  25. COMETRIQ [Suspect]
     Active Substance: CABOZANTINIB S-MALATE
     Dosage: 60 MG, QD
     Route: 048
     Dates: start: 201605
  26. VISION FORMULA [Concomitant]
  27. BENADRYL [Concomitant]
     Active Substance: DIPHENHYDRAMINE HYDROCHLORIDE
  28. NORCO [Concomitant]
     Active Substance: ACETAMINOPHEN\HYDROCODONE BITARTRATE
  29. ASPIRIN. [Concomitant]
     Active Substance: ASPIRIN
  30. BREO ELLIPTA [Concomitant]
     Active Substance: FLUTICASONE FUROATE\VILANTEROL TRIFENATATE
  31. TRAZODONE [Concomitant]
     Active Substance: TRAZODONE HYDROCHLORIDE
  32. ZAFIRLUKAST. [Concomitant]
     Active Substance: ZAFIRLUKAST

REACTIONS (8)
  - Stomatitis [Unknown]
  - Oral discomfort [Not Recovered/Not Resolved]
  - Decreased appetite [Recovering/Resolving]
  - Metastases to lymph nodes [Unknown]
  - Skin abrasion [Unknown]
  - Skin burning sensation [Not Recovered/Not Resolved]
  - Tongue discomfort [Not Recovered/Not Resolved]
  - Asthenia [Recovering/Resolving]
